FAERS Safety Report 16860908 (Version 7)
Quarter: 2020Q2

REPORT INFORMATION
  Report Type: Spontaneous
  Country: US (occurrence: US)
  Receive Date: 20190927
  Receipt Date: 20200622
  Transmission Date: 20200713
  Serious: Yes (Other)
  Sender: FDA-Public Use
  Company Number: US-PFIZER INC-2019416109

PATIENT
  Age: 54 Year
  Sex: Female

DRUGS (1)
  1. XELJANZ [Suspect]
     Active Substance: TOFACITINIB CITRATE
     Indication: RHEUMATOID ARTHRITIS
     Dosage: 5 MG, 2X/DAY
     Route: 048
     Dates: start: 201909

REACTIONS (22)
  - Sinusitis [Unknown]
  - Musculoskeletal stiffness [Recovering/Resolving]
  - Nasopharyngitis [Not Recovered/Not Resolved]
  - Therapeutic response unexpected [Unknown]
  - Rhinorrhoea [Unknown]
  - Pulmonary pain [Unknown]
  - Drug hypersensitivity [Recovering/Resolving]
  - Pulmonary oedema [Unknown]
  - Nausea [Unknown]
  - White blood cell count decreased [Unknown]
  - Viral infection [Unknown]
  - Fatigue [Unknown]
  - Nasal congestion [Unknown]
  - Cerebrovascular accident [Recovering/Resolving]
  - Myalgia [Unknown]
  - Pain in extremity [Unknown]
  - Headache [Unknown]
  - Joint stiffness [Unknown]
  - Paraesthesia [Recovering/Resolving]
  - Energy increased [Unknown]
  - Peripheral swelling [Recovering/Resolving]
  - Malaise [Recovering/Resolving]

NARRATIVE: CASE EVENT DATE: 202002
